FAERS Safety Report 18196258 (Version 2)
Quarter: 2021Q3

REPORT INFORMATION
  Report Type: Spontaneous
  Country: US (occurrence: US)
  Receive Date: 20200826
  Receipt Date: 20210823
  Transmission Date: 20211014
  Serious: No
  Sender: FDA-Public Use
  Company Number: US-ALLERGAN-1935675US

PATIENT
  Age: 67 Year
  Sex: Female
  Weight: 91.16 kg

DRUGS (6)
  1. PREDNISONE. [Suspect]
     Active Substance: PREDNISONE
     Dosage: 10 MG, QD
     Dates: start: 201808
  2. PREDNISONE. [Suspect]
     Active Substance: PREDNISONE
     Indication: DIZZINESS
     Dosage: 5 MG, QD
     Route: 065
     Dates: start: 20180813
  3. PREDNISONE. [Suspect]
     Active Substance: PREDNISONE
     Dosage: 10 MG, BID
     Dates: start: 201808
  4. KETOROLAC TROMETHAMINE 0.5% [Suspect]
     Active Substance: KETOROLAC TROMETHAMINE
     Dosage: 10 MG, Q6HR
     Route: 065
     Dates: start: 20171227
  5. KETOROLAC TROMETHAMINE 0.5% [Suspect]
     Active Substance: KETOROLAC TROMETHAMINE
     Indication: DIZZINESS
     Dosage: 10 MG, QID
     Dates: start: 20180126
  6. PREDNISONE. [Suspect]
     Active Substance: PREDNISONE
     Dosage: 10 MG, TID
     Dates: start: 201808

REACTIONS (7)
  - Fatigue [Unknown]
  - Somnolence [Unknown]
  - Heart rate increased [Unknown]
  - Weight increased [Unknown]
  - Depression [Unknown]
  - Dizziness [Not Recovered/Not Resolved]
  - Disturbance in attention [Unknown]

NARRATIVE: CASE EVENT DATE: 20180126
